FAERS Safety Report 11182361 (Version 2)
Quarter: 2015Q3

REPORT INFORMATION
  Report Type: Spontaneous
  Country: US (occurrence: US)
  Receive Date: 20150611
  Receipt Date: 20150914
  Transmission Date: 20151125
  Serious: No
  Sender: FDA-Public Use
  Company Number: US-ASTELLAS-2015US016260

PATIENT
  Age: 91 Year
  Sex: Male

DRUGS (1)
  1. XTANDI [Suspect]
     Active Substance: ENZALUTAMIDE
     Indication: PROSTATE CANCER
     Dosage: 160 MG (4 X 40MG), ONCE DAILY
     Route: 048
     Dates: start: 20150212, end: 201505

REACTIONS (8)
  - Back pain [Unknown]
  - Weight decreased [Unknown]
  - Hot flush [Unknown]
  - Ear discomfort [Unknown]
  - Decreased appetite [Unknown]
  - Fatigue [Unknown]
  - Oedema [Unknown]
  - Dyspnoea [Unknown]

NARRATIVE: CASE EVENT DATE: 20150612
